FAERS Safety Report 20651670 (Version 4)
Quarter: 2022Q2

REPORT INFORMATION
  Report Type: Spontaneous
  Country: US (occurrence: US)
  Receive Date: 20220330
  Receipt Date: 20220608
  Transmission Date: 20220721
  Serious: Yes (Hospitalization, Other)
  Sender: FDA-Public Use
  Company Number: US-BEH-2022143416

PATIENT
  Age: 67 Year
  Sex: Female

DRUGS (29)
  1. HIZENTRA [Suspect]
     Active Substance: HUMAN IMMUNOGLOBULIN G
     Indication: Immunodeficiency common variable
     Dosage: 18 GRAM, QW
     Route: 065
     Dates: start: 20220220, end: 20220320
  2. HIZENTRA [Suspect]
     Active Substance: HUMAN IMMUNOGLOBULIN G
     Indication: Hypogammaglobulinaemia
     Dosage: UNK
     Route: 065
  3. HIZENTRA [Suspect]
     Active Substance: HUMAN IMMUNOGLOBULIN G
     Indication: Chronic inflammatory demyelinating polyradiculoneuropathy
     Dosage: UNK
     Route: 065
  4. PRIVIGEN [Suspect]
     Active Substance: HUMAN IMMUNOGLOBULIN G
     Indication: Immunodeficiency common variable
     Dosage: 500 MILLIGRAM/KILOGRAM, QMT
     Route: 042
  5. PRIVIGEN [Suspect]
     Active Substance: HUMAN IMMUNOGLOBULIN G
     Dosage: 600 MILLIGRAM/KILOGRAM, QMT
     Route: 042
  6. ALVESCO [Concomitant]
     Active Substance: CICLESONIDE
     Dosage: 2 PUFFS BY MOUTH, TWO TIMES DAILY FOR 30 DAYS
     Dates: start: 20220113
  7. AMOXICILLIN [Concomitant]
     Active Substance: AMOXICILLIN
     Dosage: 500 UNK
     Dates: start: 20220310
  8. AZELASTINE [Concomitant]
     Active Substance: AZELASTINE
     Dosage: 1-2 SPRAYS EACH NOSTRIL, 1-2 TIMES PER DAYS
     Dates: start: 20191223
  9. BUDESONIDE [Concomitant]
     Active Substance: BUDESONIDE
     Dosage: UNK
     Dates: start: 20200213
  10. DUPILUMAB [Concomitant]
     Active Substance: DUPILUMAB
     Dosage: 300 MILLIGRAM, BIW
     Route: 058
     Dates: start: 20211215
  11. EPINEPHRINE [Concomitant]
     Active Substance: EPINEPHRINE
     Indication: Hypersensitivity
     Dosage: UNK MILLIGRAM
     Dates: start: 20220118
  12. ESOMEPRAZOL CT [Concomitant]
     Dosage: UNK
     Dates: start: 20210930
  13. EZETIMIBE [Concomitant]
     Active Substance: EZETIMIBE
     Dosage: 10 UNK
     Dates: start: 20211213
  14. FLUTICASONE [Concomitant]
     Active Substance: FLUTICASONE
     Dosage: SPRAY 2 SPRAYS IN EACH NOSTRIL
     Route: 045
     Dates: start: 20220129
  15. GLIPIZIDE [Concomitant]
     Active Substance: GLIPIZIDE
     Dosage: 20 MILLIGRAM, QD
     Dates: start: 20220312
  16. IPRATROPIUM BROMIDE AND ALBUTEROL SULFATE [Concomitant]
     Active Substance: ALBUTEROL SULFATE\IPRATROPIUM BROMIDE
     Dosage: UNK
     Dates: start: 20180123
  17. JANUVIA [Concomitant]
     Active Substance: SITAGLIPTIN PHOSPHATE
     Dosage: UNK
     Dates: start: 20220306
  18. LEVOFLOXACIN [Concomitant]
     Active Substance: LEVOFLOXACIN
     Dosage: 1 DOSAGE FORM, QD, FOR 7 DAYS
     Route: 048
     Dates: start: 20210415
  19. LEVOTHYROXINE [Concomitant]
     Active Substance: LEVOTHYROXINE
     Dosage: UNK
     Dates: start: 20210930
  20. MONTELUKAST SODIUM [Concomitant]
     Active Substance: MONTELUKAST SODIUM
     Dosage: 10 MILLIGRAM, QD, EVENING
     Dates: start: 20220306
  21. SEMAGLUTIDE [Concomitant]
     Active Substance: SEMAGLUTIDE
     Dosage: UNK
     Dates: start: 20220306
  22. POTASSIUM CHLORIDE [Concomitant]
     Active Substance: POTASSIUM CHLORIDE
     Dosage: UNK
     Dates: start: 20220213
  23. PROLIA [Concomitant]
     Active Substance: DENOSUMAB
     Dosage: UNK
     Route: 058
     Dates: start: 20220315
  24. SULFAMETHOXAZOLE\TRIMETHOPRIM [Concomitant]
     Active Substance: SULFAMETHOXAZOLE\TRIMETHOPRIM
     Dosage: UNK
     Dates: start: 20220307
  25. TRIAMCINOLONE ACETONIDE [Concomitant]
     Active Substance: TRIAMCINOLONE ACETONIDE
     Dosage: UNK
     Route: 061
     Dates: start: 20210727
  26. HYDROCHLOROTHIAZIDE\TRIAMTERENE [Concomitant]
     Active Substance: HYDROCHLOROTHIAZIDE\TRIAMTERENE
     Dosage: UNK
     Dates: start: 20210727
  27. VENTOLIN HFA [Concomitant]
     Active Substance: ALBUTEROL SULFATE
     Dosage: UNK
     Route: 055
     Dates: start: 20220227
  28. DIPHENHYDRAMINE [Concomitant]
     Active Substance: DIPHENHYDRAMINE
     Indication: Premedication
  29. DIPHENHYDRAMINE [Concomitant]
     Active Substance: DIPHENHYDRAMINE
     Indication: Premedication

REACTIONS (20)
  - Bell^s palsy [Unknown]
  - Product use complaint [Unknown]
  - Facial paralysis [Unknown]
  - Facial paralysis [Unknown]
  - Headache [Unknown]
  - Pruritus [Unknown]
  - Flushing [Unknown]
  - Swelling face [Recovering/Resolving]
  - Lip swelling [Recovering/Resolving]
  - Speech disorder [Recovering/Resolving]
  - Eyelid ptosis [Unknown]
  - Formication [Recovered/Resolved]
  - Hypoaesthesia [Unknown]
  - Chest discomfort [Unknown]
  - Blepharospasm [Unknown]
  - Feeling abnormal [Unknown]
  - Migraine [Unknown]
  - Blood immunoglobulin G decreased [Unknown]
  - Eyelid disorder [Unknown]
  - Mouth swelling [Unknown]

NARRATIVE: CASE EVENT DATE: 20220320
